FAERS Safety Report 4723988-8 (Version None)
Quarter: 2005Q3

REPORT INFORMATION
  Report Type: 
  Country: None (occurrence: None)
  Receive Date: 20050721
  Receipt Date: 20050715
  Transmission Date: 20060218
  Serious: Yes (Life-Threatening, Hospitalization, Other)
  Sender: FDA-Public Use
  Company Number: 2005-02514

PATIENT
  Age: 67 Year
  Sex: Male

DRUGS (2)
  1. FERRLECIT [Suspect]
     Indication: IRON DEFICIENCY ANAEMIA
     Dosage: 500 MGX 3 TO 4 DOSES, INTRAVENOUS
     Route: 042
     Dates: start: 20040601, end: 20050711
  2. EPOGEN [Concomitant]

REACTIONS (7)
  - CHEST PAIN [None]
  - DYSPNOEA [None]
  - FLUID OVERLOAD [None]
  - HYPERSENSITIVITY [None]
  - HYPOXIA [None]
  - PULMONARY OEDEMA [None]
  - RESPIRATORY ARREST [None]
